FAERS Safety Report 4960346-5 (Version None)
Quarter: 2006Q2

REPORT INFORMATION
  Report Type: 
  Country: None (occurrence: None)
  Receive Date: 20060403
  Receipt Date: 20060324
  Transmission Date: 20061013
  Serious: Yes (Hospitalization)
  Sender: FDA-Public Use
  Company Number: PHRM2006FR01185

PATIENT
  Age: 55 Year
  Sex: Male

DRUGS (4)
  1. LESCOL [Suspect]
     Indication: HYPERCHOLESTEROLAEMIA
     Dosage: 80 MG, QD
     Route: 048
     Dates: start: 20051201
  2. MIFLASONE [Concomitant]
     Indication: ASTHMA
     Dosage: 400 UG, BID
  3. FORADIL [Concomitant]
     Indication: ASTHMA
     Dosage: 12 UG, BID
  4. AUGMENTIN '125' [Concomitant]
     Indication: UPPER RESPIRATORY TRACT INFECTION
     Dosage: 1 G, UNK
     Dates: start: 20060314

REACTIONS (12)
  - BLOOD CREATINE PHOSPHOKINASE INCREASED [None]
  - BLOOD CREATININE INCREASED [None]
  - BLOOD SODIUM DECREASED [None]
  - DEHYDRATION [None]
  - DIARRHOEA [None]
  - DIFFICULTY IN WALKING [None]
  - GASTROINTESTINAL DISORDER [None]
  - MYALGIA [None]
  - NAUSEA [None]
  - RHABDOMYOLYSIS [None]
  - UPPER RESPIRATORY TRACT INFECTION [None]
  - VOMITING [None]
